FAERS Safety Report 7283693-3 (Version None)
Quarter: 2011Q1

REPORT INFORMATION
  Report Type: 
  Country: None (occurrence: None)
  Receive Date: 20110204
  Receipt Date: 20110204
  Transmission Date: 20110831
  Serious: Yes (Disabling)
  Sender: FDA-Public Use
  Company Number: None

PATIENT
  Sex: Female
  Weight: 64.4108 kg

DRUGS (5)
  1. CIPROFLOXACIN [Suspect]
     Indication: URINARY TRACT INFECTION
     Dosage: 250 MG TAB PILL TWICE DAILY
     Dates: start: 20081218
  2. CIPROFLOXACIN [Suspect]
     Indication: URINARY TRACT INFECTION
     Dosage: 250 MG TAB PILL TWICE DAILY
     Dates: start: 20081217
  3. CIPROFLOXACIN [Suspect]
     Indication: URINARY TRACT INFECTION
     Dosage: 250 MG TAB PILL TWICE DAILY
     Dates: start: 20081220
  4. CIPROFLOXACIN [Suspect]
     Indication: URINARY TRACT INFECTION
     Dosage: 250 MG TAB PILL TWICE DAILY
     Dates: start: 20081219
  5. CIPROFLOXACIN [Suspect]
     Indication: URINARY TRACT INFECTION
     Dosage: 250 MG TAB PILL TWICE DAILY
     Dates: start: 20081216

REACTIONS (3)
  - SOFT TISSUE DISORDER [None]
  - TENDON RUPTURE [None]
  - SWELLING [None]
